FAERS Safety Report 7320672-1 (Version None)
Quarter: 2011Q1

REPORT INFORMATION
  Report Type: 
  Country: None (occurrence: None)
  Receive Date: 20110216
  Receipt Date: 20110205
  Transmission Date: 20110831
  Serious: No
  Sender: FDA-Public Use
  Company Number: 2011-00047

PATIENT
  Age: 38 Year
  Sex: Female
  Weight: 65.7716 kg

DRUGS (3)
  1. ZICAM COLD REMEDY ORAL MIST [Suspect]
     Dosage: EVERY 3 HOURS, 2 DAYS
     Dates: start: 20110204, end: 20110205
  2. ASCORBIC ACID [Concomitant]
  3. SUDAFED (AS NEEDED) [Concomitant]

REACTIONS (5)
  - AGEUSIA [None]
  - POLYDIPSIA [None]
  - HYPOAESTHESIA ORAL [None]
  - DRUG INEFFECTIVE [None]
  - THROAT IRRITATION [None]
